FAERS Safety Report 5991119-2 (Version None)
Quarter: 2008Q4

REPORT INFORMATION
  Report Type: 
  Country: None (occurrence: None)
  Receive Date: 20081202
  Receipt Date: 20080505
  Transmission Date: 20090506
  Serious: Yes (Disabling)
  Sender: FDA-Public Use
  Company Number: WAES 0805USA00890

PATIENT
  Sex: Male

DRUGS (1)
  1. FOSAMAX [Suspect]
     Dosage: PO
     Route: 048

REACTIONS (5)
  - BLOOD SODIUM [None]
  - EMOTIONAL DISTRESS [None]
  - INJURY [None]
  - LEGAL PROBLEM [None]
  - PAIN [None]
